FAERS Safety Report 15833825 (Version 3)
Quarter: 2019Q1

REPORT INFORMATION
  Report Type: Spontaneous
  Country: DE (occurrence: DE)
  Receive Date: 20190116
  Receipt Date: 20190321
  Transmission Date: 20190417
  Serious: Yes (Life-Threatening, Hospitalization)
  Sender: FDA-Public Use
  Company Number: DE-MYLANLABS-2019M1002754

PATIENT
  Age: 88 Year
  Sex: Male

DRUGS (12)
  1. PIPAMPERONE [Interacting]
     Active Substance: PIPAMPERONE
     Indication: PRODUCT USED FOR UNKNOWN INDICATION
     Dosage: 40 MILLIGRAM, QD (DOSAGE FORM: UNSPECIFIED)
     Route: 048
     Dates: start: 20171126
  2. NITRENDIPIN [Interacting]
     Active Substance: NITRENDIPINE
     Indication: CARDIAC DISORDER
     Dosage: 30 MILLIGRAM, QD (DOSAGE FORM: UNSPECIFIED, FOR YEARS)
     Route: 048
  3. SALBUTAMOL [Concomitant]
     Active Substance: ALBUTEROL
     Dosage: 0.12 MICROGRAM, QD (DOSAGE FORM: UNSPECIFIED, FOR YEARS)
     Route: 048
  4. ULTIBRO BREEZHALER [Concomitant]
     Active Substance: GLYCOPYRRONIUM\INDACATEROL
     Dosage: UNK, QD (UNSPECIFIED, DOSE: 63/143 UG; FOR YEARS)
     Route: 048
  5. SIMVASTATIN. [Concomitant]
     Active Substance: SIMVASTATIN
     Dosage: 40 MILLIGRAM, QD (DOSAGE FORM: UNSPECIFIED, FOR YEARS)
     Route: 048
  6. PANTOZOL [Concomitant]
     Active Substance: PANTOPRAZOLE SODIUM
     Dosage: 20 MILLIGRAM, QD (DOSAGE FORM: UNSPECIFIED, FOR YEARS)
     Route: 048
  7. PIPAMPERONE [Interacting]
     Active Substance: PIPAMPERONE
     Dosage: 60 MILLIGRAM, QD
     Route: 048
     Dates: start: 20171129
  8. RISPERIDONE. [Interacting]
     Active Substance: RISPERIDONE
     Dosage: 1 MILLIGRAM, QD
     Route: 048
     Dates: start: 20171128
  9. BISOPROLOL [Interacting]
     Active Substance: BISOPROLOL
     Indication: CARDIAC DISORDER
     Dosage: 2.5 MILLIGRAM,  (DOSAGE FORM: UNSPECIFIED, FOR YEARS)
     Route: 048
  10. ENTRESTO [Interacting]
     Active Substance: SACUBITRIL\VALSARTAN
     Indication: CARDIAC DISORDER
     Dosage: 194 MILLIGRAM, QD (DOSAGE FORM: UNSPECIFIED, FOR YEARS)
     Route: 048
     Dates: end: 20171208
  11. RISPERIDONE. [Suspect]
     Active Substance: RISPERIDONE
     Indication: PRODUCT USED FOR UNKNOWN INDICATION
     Dosage: 0.5 MILLIGRAM, QD
     Route: 048
     Dates: start: 20171126
  12. ASPIRIN. [Concomitant]
     Active Substance: ASPIRIN
     Dosage: 100 MILLIGRAM, QD (DOSAGE FORM: UNSPECIFIED, DOSE: 100 (UNITS UNSPECIFIED); FOR YEARS)
     Route: 065

REACTIONS (4)
  - Drug interaction [Recovered/Resolved]
  - Dizziness [Recovered/Resolved]
  - Hypotension [Recovered/Resolved]
  - Loss of consciousness [Recovered/Resolved]

NARRATIVE: CASE EVENT DATE: 2017
